FAERS Safety Report 6652160-X (Version None)
Quarter: 2010Q1

REPORT INFORMATION
  Report Type: 
  Country: None (occurrence: None)
  Receive Date: 20100323
  Receipt Date: 20100310
  Transmission Date: 20100710
  Serious: Yes (Hospitalization)
  Sender: FDA-Public Use
  Company Number: 232196J10USA

PATIENT
  Age: 57 Year
  Sex: Female
  Weight: 62 kg

DRUGS (11)
  1. REBIF [Suspect]
     Indication: MULTIPLE SCLEROSIS
     Dosage: 44 MCG, 3 IN 1 WEEKS, SUBCUTANEOUS
     Route: 058
     Dates: start: 20090513
  2. ELAVIL [Suspect]
     Dosage: NOT REPORTED, NOT REPORTED, NOT REPORTED
  3. DETROL [Concomitant]
  4. HYDROCHLOROYHIAZIDE (HYDROCHLOROTHIAZIDE) [Concomitant]
  5. LANLAN (ALL OTHER THERAPEUTIC PRODUCTS) [Concomitant]
  6. INDERAL [Concomitant]
  7. POTASSIUM (POTASSIUM) [Concomitant]
  8. VICODIN [Concomitant]
  9. KEPPRA [Concomitant]
  10. PREMARIN [Concomitant]
  11. CYMBALTA [Suspect]
     Dosage: NOT REPORTED, NOT REPORTED, NOT REPORTED

REACTIONS (2)
  - GRAND MAL CONVULSION [None]
  - HYPERTENSIVE CRISIS [None]
